FAERS Safety Report 8928628 (Version 1)
Quarter: 2012Q4

REPORT INFORMATION
  Report Type: Spontaneous
  Country: US (occurrence: None)
  Receive Date: 20121126
  Receipt Date: 20121126
  Transmission Date: 20130627
  Serious: Yes (Hospitalization)
  Sender: FDA-Public Use
  Company Number: None

PATIENT
  Sex: Female
  Weight: 71.7 kg

DRUGS (5)
  1. ZOLEDRONIC ACID (ZOLENDRONATE, ZOMETA) [Suspect]
  2. OXYCODONE [Concomitant]
  3. TRAMADOL [Concomitant]
  4. TRIVALENT MOUTHWASH [Concomitant]
  5. WARFARIN [Concomitant]

REACTIONS (12)
  - Mucosal inflammation [None]
  - Dehydration [None]
  - Pain [None]
  - Oedema peripheral [None]
  - Neutropenia [None]
  - Hypotension [None]
  - Tachycardia [None]
  - Tachypnoea [None]
  - Lethargy [None]
  - Ileus [None]
  - Multi-organ failure [None]
  - Duodenal ulcer perforation [None]
